FAERS Safety Report 5828537-9 (Version None)
Quarter: 2008Q3

REPORT INFORMATION
  Report Type: 
  Country: None (occurrence: None)
  Receive Date: 20080729
  Receipt Date: 20080729
  Transmission Date: 20090109
  Serious: Yes (Other)
  Sender: FDA-Public Use
  Company Number: None

PATIENT
  Sex: Male
  Weight: 65.7716 kg

DRUGS (6)
  1. CHANTIX [Suspect]
     Indication: SMOKING CESSATION THERAPY
     Dosage: 1MG TWICE A DAY PO
     Route: 048
     Dates: start: 20071210, end: 20080612
  2. SERTRALINE [Suspect]
     Indication: PARKINSON'S DISEASE
     Dosage: 100MG ONCE A DAY PO
     Route: 048
     Dates: start: 20080117, end: 20080601
  3. COMTAN [Concomitant]
  4. SINEMET [Concomitant]
  5. CARBIDOPA/LEVODOPA ER [Concomitant]
  6. NAMENDA [Concomitant]

REACTIONS (4)
  - ABNORMAL DREAMS [None]
  - AGGRESSION [None]
  - INSOMNIA [None]
  - NIGHTMARE [None]
